FAERS Safety Report 11713974 (Version 3)
Quarter: 2016Q1

REPORT INFORMATION
  Report Type: Spontaneous
  Country: IN (occurrence: IN)
  Receive Date: 20151109
  Receipt Date: 20160107
  Transmission Date: 20160525
  Serious: Yes (Death)
  Sender: FDA-Public Use
  Company Number: PHHY2015IN144882

PATIENT
  Age: 50 Year
  Sex: Male
  Weight: 77 kg

DRUGS (6)
  1. SIMULECT [Suspect]
     Active Substance: BASILIXIMAB
     Indication: PRODUCT USED FOR UNKNOWN INDICATION
     Dosage: ONE VIAL ON OT (OPERATION THEATRE), AND 20 MG ON FOURTH DAY POST OPERATIVE
     Route: 042
     Dates: start: 20151014, end: 20151018
  2. SANDIMMUN NEORAL [Concomitant]
     Active Substance: CYCLOSPORINE
     Indication: PRODUCT USED FOR UNKNOWN INDICATION
     Dosage: 225 MG, BID
     Route: 048
     Dates: start: 20151014, end: 20151030
  3. AMIKACIN [Concomitant]
     Active Substance: AMIKACIN
     Indication: PRODUCT USED FOR UNKNOWN INDICATION
     Dosage: 200 MG, TID
     Route: 048
     Dates: start: 20151014, end: 20151030
  4. MYFORTIC [Concomitant]
     Active Substance: MYCOPHENOLATE SODIUM
     Indication: PRODUCT USED FOR UNKNOWN INDICATION
     Dosage: 360 MG, TID
     Route: 048
     Dates: start: 20151014, end: 20151030
  5. SIMULECT [Suspect]
     Active Substance: BASILIXIMAB
     Dosage: 20 MG, UNK
     Route: 042
  6. STAMLO [Concomitant]
     Active Substance: AMLODIPINE BESYLATE
     Indication: PRODUCT USED FOR UNKNOWN INDICATION
     Dosage: 5 MG, BID
     Route: 048
     Dates: start: 20151014, end: 20151030

REACTIONS (1)
  - Transplant rejection [Fatal]

NARRATIVE: CASE EVENT DATE: 20151020
